FAERS Safety Report 24901257 (Version 2)
Quarter: 2025Q1

REPORT INFORMATION
  Report Type: Spontaneous
  Country: FR (occurrence: FR)
  Receive Date: 20250129
  Receipt Date: 20250204
  Transmission Date: 20250408
  Serious: Yes (Hospitalization)
  Sender: PFIZER
  Company Number: FR-PFM-2025-00408

PATIENT
  Age: 64 Year
  Sex: Male

DRUGS (2)
  1. BRAFTOVI [Suspect]
     Active Substance: ENCORAFENIB
     Indication: Colorectal cancer metastatic
     Route: 065
     Dates: start: 20241001, end: 20241119
  2. CETUXIMAB [Suspect]
     Active Substance: CETUXIMAB
     Indication: Colorectal cancer metastatic
     Route: 065
     Dates: start: 20241001, end: 20241119

REACTIONS (2)
  - Dehydration [Unknown]
  - Vomiting [Unknown]

NARRATIVE: CASE EVENT DATE: 20241119
